FAERS Safety Report 22290240 (Version 1)
Quarter: 2023Q2

REPORT INFORMATION
  Report Type: Spontaneous
  Country: KR (occurrence: KR)
  Receive Date: 20230505
  Receipt Date: 20230505
  Transmission Date: 20230722
  Serious: Yes (Death)
  Sender: FDA-Public Use
  Company Number: KR-DSJP-DSJ-2023-117299AA

PATIENT
  Sex: Male

DRUGS (3)
  1. TRASTUZUMAB DERUXTECAN [Suspect]
     Active Substance: TRASTUZUMAB DERUXTECAN
     Indication: Gastric cancer
     Dosage: 6.4 MG, SINGLE, ONCE
     Route: 042
     Dates: start: 20230118
  2. TRASTUZUMAB DERUXTECAN [Suspect]
     Active Substance: TRASTUZUMAB DERUXTECAN
     Dosage: 6.4 MG, SINGLE, ONCE
     Route: 042
     Dates: start: 20230228
  3. TRASTUZUMAB DERUXTECAN [Suspect]
     Active Substance: TRASTUZUMAB DERUXTECAN
     Dosage: 6.4 MG, SINGLE, ONCE
     Route: 042
     Dates: start: 20230405, end: 20230405

REACTIONS (1)
  - Gastric cancer [Fatal]
